FAERS Safety Report 4267488-0 (Version None)
Quarter: 2004Q1

REPORT INFORMATION
  Report Type: 
  Country: None (occurrence: None)
  Receive Date: 20040109
  Receipt Date: 20031208
  Transmission Date: 20041129
  Serious: Yes (Hospitalization)
  Sender: FDA-Public Use
  Company Number: FR-BRISTOL-MYERS SQUIBB COMPANY-12452736

PATIENT
  Age: 46 Year
  Sex: Male
  Weight: 67 kg

DRUGS (5)
  1. TAXOL [Suspect]
     Route: 042
     Dates: start: 20020719, end: 20020809
  2. CARBOPLATINE [Concomitant]
     Dosage: COURSE 1 RECEIVED ON 19-JUL-2002
     Route: 042
     Dates: start: 20020809, end: 20020809
  3. SOLU-MEDROL [Concomitant]
     Indication: PREMEDICATION
  4. RANIPLEX [Concomitant]
  5. POLARAMINE [Concomitant]
     Indication: PREMEDICATION

REACTIONS (5)
  - BLOOD PRESSURE ABNORMAL [None]
  - CHEST WALL PAIN [None]
  - ERYTHEMA [None]
  - FEELING HOT [None]
  - MALAISE [None]
